FAERS Safety Report 6603998-6 (Version None)
Quarter: 2010Q1

REPORT INFORMATION
  Report Type: 
  Country: None (occurrence: None)
  Receive Date: 20100226
  Receipt Date: 20090408
  Transmission Date: 20100710
  Serious: No
  Sender: FDA-Public Use
  Company Number: A0777791A

PATIENT
  Age: 33 Year
  Sex: Male

DRUGS (4)
  1. LAMICTAL CD [Suspect]
     Dosage: 200MG TWICE PER DAY
     Route: 048
     Dates: start: 19960201
  2. LIPITOR [Concomitant]
  3. NIACIN [Concomitant]
  4. ATIVAN [Concomitant]

REACTIONS (1)
  - DIARRHOEA [None]
